FAERS Safety Report 6060183-7 (Version None)
Quarter: 2009Q1

REPORT INFORMATION
  Report Type: 
  Country: None (occurrence: None)
  Receive Date: 20090128
  Receipt Date: 20090116
  Transmission Date: 20090719
  Serious: Yes (Death)
  Sender: FDA-Public Use
  Company Number: 040240

PATIENT
  Age: 44 Year
  Sex: Male

DRUGS (5)
  1. VENLAFAXINE HCL [Suspect]
  2. WARFARIN SODIUM [Suspect]
  3. RANITIDINE [Suspect]
  4. QUETIAPINE FUMARATE [Suspect]
  5. BENAZEPRIL HYDROCHLORIDE [Suspect]

REACTIONS (1)
  - COMPLETED SUICIDE [None]
